FAERS Safety Report 5240286-7 (Version None)
Quarter: 2007Q1

REPORT INFORMATION
  Report Type: 
  Country: None (occurrence: None)
  Receive Date: 20070219
  Receipt Date: 20070205
  Transmission Date: 20070707
  Serious: Yes (Other)
  Sender: FDA-Public Use
  Company Number: PHBS2007JP02314

PATIENT
  Age: 6 Year
  Sex: Female

DRUGS (1)
  1. TEGRETOL [Suspect]
     Dosage: 240 MG/DAY
     Route: 048
     Dates: start: 20060401

REACTIONS (4)
  - CYSTITIS [None]
  - MENINGITIS [None]
  - PYELONEPHRITIS [None]
  - PYREXIA [None]
